FAERS Safety Report 9123235 (Version 1)
Quarter: 2013Q1

REPORT INFORMATION
  Report Type: Spontaneous
  Country: US (occurrence: US)
  Receive Date: 20130115
  Receipt Date: 20130115
  Transmission Date: 20140127
  Serious: No
  Sender: FDA-Public Use
  Company Number: US-009507513-1301USA005832

PATIENT
  Sex: Female

DRUGS (4)
  1. PEGINTRON [Suspect]
     Indication: HEPATITIS C
     Dosage: 150 MICROGRAM, QW
     Dates: start: 201210
  2. REBETOL [Suspect]
     Route: 048
  3. CALCIUM (UNSPECIFIED) [Concomitant]
  4. ASPIRIN [Concomitant]

REACTIONS (8)
  - Influenza like illness [Not Recovered/Not Resolved]
  - Dry skin [Not Recovered/Not Resolved]
  - Hyperaesthesia [Not Recovered/Not Resolved]
  - Fatigue [Not Recovered/Not Resolved]
  - Full blood count decreased [Not Recovered/Not Resolved]
  - Asthenia [Not Recovered/Not Resolved]
  - Incorrect storage of drug [Unknown]
  - No therapeutic response [Unknown]
